FAERS Safety Report 7598032-8 (Version None)
Quarter: 2011Q3

REPORT INFORMATION
  Report Type: 
  Country: None (occurrence: None)
  Receive Date: 20110708
  Receipt Date: 20110628
  Transmission Date: 20111222
  Serious: Yes (Other)
  Sender: FDA-Public Use
  Company Number: US-CELGENEUS-163-21880-11062094

PATIENT
  Sex: Male
  Weight: 96 kg

DRUGS (1)
  1. REVLIMID [Suspect]
     Dosage: 10 MILLIGRAM
     Route: 048
     Dates: start: 20110414

REACTIONS (3)
  - JOINT SWELLING [None]
  - DRUG INTOLERANCE [None]
  - ABASIA [None]
